FAERS Safety Report 21021100 (Version 1)
Quarter: 2022Q2

REPORT INFORMATION
  Report Type: Report from Study
  Country: CA (occurrence: CA)
  Receive Date: 20220629
  Receipt Date: 20220629
  Transmission Date: 20220721
  Serious: Yes (Hospitalization)
  Sender: FDA-Public Use
  Company Number: CA-CHIESI-2022CHF03142

PATIENT
  Age: 34 Year
  Sex: Male

DRUGS (1)
  1. DEFERIPRONE [Suspect]
     Active Substance: DEFERIPRONE
     Indication: Congenital dyserythropoietic anaemia
     Dosage: 1000 MILLIGRAM, TID
     Route: 048
     Dates: start: 20150515, end: 20220616

REACTIONS (1)
  - Arthropathy [Recovered/Resolved]

NARRATIVE: CASE EVENT DATE: 20220617
